FAERS Safety Report 15416666 (Version 1)
Quarter: 2018Q3

REPORT INFORMATION
  Report Type: Spontaneous
  Country: US (occurrence: US)
  Receive Date: 20180924
  Receipt Date: 20180924
  Transmission Date: 20181010
  Serious: Yes (Hospitalization)
  Sender: FDA-Public Use
  Company Number: US-CIPLA (EU) LIMITED-STD201405-001245

PATIENT

DRUGS (2)
  1. CYPROHEPTADINE. [Concomitant]
     Active Substance: CYPROHEPTADINE
     Indication: PARTIAL SEIZURES
     Dosage: 5 ML, PRN, AT BEDTIME
     Route: 065
  2. TOPIRAMATE. [Suspect]
     Active Substance: TOPIRAMATE
     Indication: PARTIAL SEIZURES
     Dosage: 25 MG, PER DAY, AT BEDTIME (LAST DOSE 20 HOURS PRIOR TO PRESENTATION, AT BEDTIME)
     Route: 065

REACTIONS (3)
  - Acute myopia [Recovered/Resolved]
  - Toxicity to various agents [Recovered/Resolved]
  - Angle closure glaucoma [Recovered/Resolved]
